FAERS Safety Report 8933391 (Version 4)
Quarter: 2013Q4

REPORT INFORMATION
  Report Type: Spontaneous
  Country: GB (occurrence: GB)
  Receive Date: 20121128
  Receipt Date: 20131002
  Transmission Date: 20140711
  Serious: Yes (Other)
  Sender: FDA-Public Use
  Company Number: GB-B.I. PHARMACEUTICALS,INC./RIDGEFIELD-2012-UK-01799UK

PATIENT
  Age: 69 Year
  Sex: Male
  Weight: 107 kg

DRUGS (12)
  1. DABIGATRAN [Suspect]
     Indication: ATRIAL FIBRILLATION
     Dosage: 220 MG
     Route: 048
     Dates: start: 20120709
  2. DABIGATRAN [Suspect]
     Dosage: 300 MG
  3. ALLOPURINOL [Concomitant]
     Dosage: 100 MG
  4. BISOPROLOL [Concomitant]
     Dosage: 5 MG
  5. BUMETANIDE [Concomitant]
     Dosage: 1 MG
  6. DIGOXIN [Concomitant]
  7. LATANOPROST [Concomitant]
  8. RAMIPRIL [Concomitant]
     Dosage: 10 MG
  9. SIMVASTATIN [Concomitant]
     Dosage: 10 MG
  10. SPIRONOLACTONE [Concomitant]
     Dosage: 25 MG
  11. TIMOLOL [Concomitant]
  12. ROXENIDINE [Concomitant]
     Dosage: 1 MG

REACTIONS (2)
  - Intracardiac thrombus [Recovered/Resolved]
  - Atrial thrombosis [Not Recovered/Not Resolved]
